FAERS Safety Report 5849627-0 (Version None)
Quarter: 2008Q3

REPORT INFORMATION
  Report Type: 
  Country: None (occurrence: None)
  Receive Date: 20080819
  Receipt Date: 20080813
  Transmission Date: 20090109
  Serious: Yes (Death, Life-Threatening)
  Sender: FDA-Public Use
  Company Number: ZA-AVENTIS-200816897GDDC

PATIENT
  Age: 71 Year
  Sex: Female

DRUGS (4)
  1. TAXOTERE [Suspect]
     Route: 042
     Dates: start: 20080623, end: 20080623
  2. NAVELBINE [Suspect]
     Dosage: DOSE: 50MG ON DAY 1
     Route: 042
     Dates: start: 20080623
  3. UNKNOWN DRUG [Concomitant]
     Indication: HYPERTENSION
     Route: 048
  4. ENAP                               /00574901/ [Concomitant]
     Indication: HYPERTENSION
     Route: 048

REACTIONS (3)
  - EMBOLISM [None]
  - NEUTROPENIA [None]
  - PYREXIA [None]
